FAERS Safety Report 18919185 (Version 1)
Quarter: 2021Q1

REPORT INFORMATION
  Report Type: Spontaneous
  Country: US (occurrence: US)
  Receive Date: 20210220
  Receipt Date: 20210220
  Transmission Date: 20210420
  Serious: Yes (Other)
  Sender: FDA-Public Use
  Company Number: US-ABBVIE-21K-163-3781161-00

PATIENT
  Sex: Female

DRUGS (1)
  1. SYNTHROID [Suspect]
     Active Substance: LEVOTHYROXINE SODIUM
     Indication: PRODUCT USED FOR UNKNOWN INDICATION
     Dosage: FOR 30 YEARS
     Route: 048
     Dates: start: 1988

REACTIONS (2)
  - Night sweats [Unknown]
  - Hysterectomy [Unknown]

NARRATIVE: CASE EVENT DATE: 2001
